FAERS Safety Report 4576049-5 (Version None)
Quarter: 2005Q1

REPORT INFORMATION
  Report Type: 
  Country: None (occurrence: None)
  Receive Date: 20050204
  Receipt Date: 20050121
  Transmission Date: 20050727
  Serious: Yes (Other)
  Sender: FDA-Public Use
  Company Number: 2005-DE-00229GD

PATIENT
  Age: 42 Year
  Sex: Male

DRUGS (3)
  1. NEVIRAPINE [Suspect]
     Indication: HIV INFECTION
     Dosage: SEE IMAGE
  2. ZIDOVUDINE [Suspect]
     Indication: HIV INFECTION
     Dosage: SEE IMAGE
  3. LAMIVUDINE [Suspect]
     Indication: HIV INFECTION

REACTIONS (2)
  - DRUG INEFFECTIVE [None]
  - MULTIPLE-DRUG RESISTANCE [None]
